FAERS Safety Report 8237049-7 (Version None)
Quarter: 2012Q1

REPORT INFORMATION
  Report Type: 
  Country: None (occurrence: None)
  Receive Date: 20120327
  Receipt Date: 20120323
  Transmission Date: 20120608
  Serious: Yes (Other)
  Sender: FDA-Public Use
  Company Number: PHHY2011NL106669

PATIENT
  Sex: Female

DRUGS (5)
  1. ZOMETA [Suspect]
     Dosage: 4 MG, / 5 ML ONCE EVERY 28 DAYS
     Dates: start: 20120301
  2. ZOMETA [Suspect]
     Dosage: 4 MG, / 5 ML ONCE EVERY 28 DAYS
     Dates: start: 20111110
  3. ZOMETA [Suspect]
     Dosage: 4 MG, / 5 ML ONCE EVERY 28 DAYS
     Dates: start: 20111206
  4. ZOMETA [Suspect]
     Indication: METASTASES TO BONE
     Dosage: 4 MG, / 5 ML ONCE EVERY 28 DAYS
     Dates: start: 20110330
  5. ZOMETA [Suspect]
     Dosage: 4 MG, / 5 ML ONCE EVERY 28 DAYS
     Dates: start: 20120130

REACTIONS (4)
  - NEOPLASM PROGRESSION [None]
  - NEOPLASM MALIGNANT [None]
  - TERMINAL STATE [None]
  - DRUG INTOLERANCE [None]
